FAERS Safety Report 16249182 (Version 2)
Quarter: 2019Q2

REPORT INFORMATION
  Report Type: Spontaneous
  Country: US (occurrence: US)
  Receive Date: 20190429
  Receipt Date: 20190510
  Transmission Date: 20190711
  Serious: Yes (Other)
  Sender: FDA-Public Use
  Company Number: US-ASTRAZENECA-2019SE09870

PATIENT
  Age: 26352 Day
  Sex: Female
  Weight: 87.5 kg

DRUGS (9)
  1. PRILOSEC [Suspect]
     Active Substance: OMEPRAZOLE MAGNESIUM
     Dosage: FOR VARIOUS DATES AND YEARS PRIOR TO AND/OR INCLUDING THE DATE
     Route: 048
  2. VESICARE [Concomitant]
     Active Substance: SOLIFENACIN SUCCINATE
  3. NEXIUM [Suspect]
     Active Substance: ESOMEPRAZOLE MAGNESIUM
     Dosage: FOR VARIOUS DATES AND YEARS PRIOR TO AND/OR INCLUDING THE DATES
     Route: 048
  4. ZANTAC [Concomitant]
     Active Substance: RANITIDINE HYDROCHLORIDE
  5. PREVACID [Suspect]
     Active Substance: LANSOPRAZOLE
     Dosage: FOR VARIOUS DATES AND YEARS PRIOR TO AND/OR INCLUDING THE DATE
     Route: 065
  6. DEXILANT [Suspect]
     Active Substance: DEXLANSOPRAZOLE
     Dosage: FOR VARIOUS DATES AND YEARS PRIOR TO AND/OR INCLUDING THE DATE
     Route: 065
  7. PREMARIN [Concomitant]
     Active Substance: ESTROGENS, CONJUGATED
  8. TYLENOL [Concomitant]
     Active Substance: ACETAMINOPHEN
  9. ASPIRIN. [Concomitant]
     Active Substance: ASPIRIN

REACTIONS (5)
  - Chronic kidney disease [Unknown]
  - Renal injury [Unknown]
  - Renal failure [Unknown]
  - Nephrogenic anaemia [Unknown]
  - Rebound acid hypersecretion [Unknown]

NARRATIVE: CASE EVENT DATE: 20151020
